FAERS Safety Report 4652563-9 (Version None)
Quarter: 2005Q2

REPORT INFORMATION
  Report Type: 
  Country: None (occurrence: None)
  Receive Date: 20050502
  Receipt Date: 20050425
  Transmission Date: 20051028
  Serious: Yes (Life-Threatening, Hospitalization)
  Sender: FDA-Public Use
  Company Number: 200511103GDS

PATIENT
  Age: 65 Year
  Sex: Male
  Weight: 81 kg

DRUGS (2)
  1. ACTIMAX (MOXIFLOXACIN) [Suspect]
     Indication: BRONCHOPNEUMONIA
     Dosage: 400 MG, QD, ORAL
     Route: 048
     Dates: start: 20050321, end: 20050328
  2. MUCOLYTIC MEDICATION (UNSPECIFIED) [Concomitant]

REACTIONS (3)
  - FATIGUE [None]
  - PRODUCTIVE COUGH [None]
  - PYREXIA [None]
